FAERS Safety Report 25530672 (Version 1)
Quarter: 2025Q3

REPORT INFORMATION
  Report Type: Spontaneous
  Country: EU (occurrence: EU)
  Receive Date: 20250708
  Receipt Date: 20250708
  Transmission Date: 20251020
  Serious: Yes (Other)
  Sender: ELI LILLY AND COMPANY
  Company Number: None

PATIENT
  Age: 72 Year
  Sex: Female
  Weight: 100 kg

DRUGS (11)
  1. MOUNJARO [Suspect]
     Active Substance: TIRZEPATIDE
     Indication: Weight control
     Dosage: 7.5 MG, WEEKLY (1/W)
     Route: 058
     Dates: start: 20250612
  2. ALDACTONE [Concomitant]
     Active Substance: SPIRONOLACTONE
     Indication: Hypertension
     Route: 048
     Dates: start: 20240608
  3. VALSARTAN [Concomitant]
     Active Substance: VALSARTAN
     Indication: Hypertension
     Route: 048
     Dates: start: 20240608
  4. PAROXETINA STADA [Concomitant]
     Indication: Product used for unknown indication
     Route: 048
     Dates: start: 20090603
  5. RABEPRAZOLE [Concomitant]
     Active Substance: RABEPRAZOLE
     Indication: Gastrooesophageal reflux disease
     Route: 048
     Dates: start: 20171220
  6. LEVOSULPIRIDE [Concomitant]
     Active Substance: LEVOSULPIRIDE
     Indication: Gastrooesophageal reflux disease
     Route: 048
     Dates: start: 20171220
  7. BILASTINE [Concomitant]
     Active Substance: BILASTINE
     Indication: Hypersensitivity
     Dosage: 20 MG, DAILY
     Route: 048
     Dates: start: 20180529
  8. BISOPROLOL FUMARATE [Concomitant]
     Active Substance: BISOPROLOL FUMARATE
     Indication: Tachycardia
     Route: 048
     Dates: start: 20201224
  9. ASPIRIN [Concomitant]
     Active Substance: ASPIRIN
     Indication: Myocardial ischaemia
     Route: 048
     Dates: start: 20210604
  10. LIPOCOMB [EZETIMIBE;ROSUVASTATIN ZINC] [Concomitant]
     Indication: Myocardial ischaemia
     Route: 048
     Dates: start: 20210930
  11. ROSUVASTATINA NORMON [Concomitant]
     Indication: Myocardial ischaemia
     Route: 048
     Dates: start: 20221221

REACTIONS (2)
  - Prerenal failure [Recovering/Resolving]
  - Diarrhoea [Recovered/Resolved]

NARRATIVE: CASE EVENT DATE: 20250615
